FAERS Safety Report 10258606 (Version 1)
Quarter: 2014Q2

REPORT INFORMATION
  Report Type: Spontaneous
  Country: GB (occurrence: GB)
  Receive Date: 20140625
  Receipt Date: 20140625
  Transmission Date: 20141212
  Serious: Yes (Other)
  Sender: FDA-Public Use
  Company Number: GB-US-EMD SERONO, INC.-7301244

PATIENT
  Age: 27 Year
  Sex: Female
  Weight: 68 kg

DRUGS (3)
  1. OVITRELLE [Suspect]
     Indication: IN VITRO FERTILISATION
     Route: 058
     Dates: start: 20140609, end: 20140609
  2. CETROTIDE [Concomitant]
     Indication: PRODUCT USED FOR UNKNOWN INDICATION
  3. GONAL-F [Concomitant]
     Indication: PRODUCT USED FOR UNKNOWN INDICATION

REACTIONS (1)
  - Syncope [Recovered/Resolved]
